FAERS Safety Report 5094741-3 (Version None)
Quarter: 2006Q3

REPORT INFORMATION
  Report Type: 
  Country: None (occurrence: None)
  Receive Date: 20060731
  Receipt Date: 20060414
  Transmission Date: 20061208
  Serious: No
  Sender: FDA-Public Use
  Company Number: 2006PV012112

PATIENT
  Age: 57 Year
  Sex: Female
  Weight: 67.1324 kg

DRUGS (4)
  1. BYETTA [Suspect]
     Indication: DIABETES MELLITUS NON-INSULIN-DEPENDENT
     Dosage: 5 MCG; QD; SC
     Route: 058
     Dates: start: 20060409
  2. METFORMIN HCL [Concomitant]
  3. ACTOS [Concomitant]
  4. PREVACID [Concomitant]

REACTIONS (9)
  - BLOOD GLUCOSE DECREASED [None]
  - BLOOD GLUCOSE INCREASED [None]
  - ERUCTATION [None]
  - FATIGUE [None]
  - GASTROOESOPHAGEAL REFLUX DISEASE [None]
  - HEADACHE [None]
  - NAUSEA [None]
  - SOMNOLENCE [None]
  - TREMOR [None]
